FAERS Safety Report 26019657 (Version 1)
Quarter: 2025Q4

REPORT INFORMATION
  Report Type: Spontaneous
  Country: EU (occurrence: EU)
  Receive Date: 20251110
  Receipt Date: 20251110
  Transmission Date: 20260118
  Serious: Yes (Death, Other)
  Sender: AMGEN
  Company Number: EU-AMGEN-POLSP2025218383

PATIENT

DRUGS (3)
  1. CARFILZOMIB [Suspect]
     Active Substance: CARFILZOMIB
     Indication: Plasma cell myeloma refractory
     Dosage: 20 MILLIGRAM/SQ. METER 1ST DOSE IN THE FIRST CYCLE
     Route: 040
  2. CARFILZOMIB [Suspect]
     Active Substance: CARFILZOMIB
     Dosage: 70 MILLIGRAM/SQ. METER  SUBSEQUENT WEEKS (ON DAYS 1, 8 AND 15)
     Route: 040
  3. DEXAMETHASONE [Suspect]
     Active Substance: DEXAMETHASONE
     Indication: Plasma cell myeloma refractory
     Dosage: 40 MILLIGRAM, QWK ONCE WEEKLY, IN 28-DAY CYCLES
     Route: 048

REACTIONS (5)
  - Death [Fatal]
  - Plasma cell myeloma refractory [Unknown]
  - Toxicity to various agents [Unknown]
  - Therapy partial responder [Unknown]
  - Therapy non-responder [Unknown]
